FAERS Safety Report 9119347 (Version 1)
Quarter: 2013Q1

REPORT INFORMATION
  Report Type: Spontaneous
  Country: US (occurrence: US)
  Receive Date: 20130207
  Receipt Date: 20130207
  Transmission Date: 20140127
  Serious: No
  Sender: FDA-Public Use
  Company Number: US-ASTRAZENECA-2013SE07326

PATIENT
  Age: 55 Year
  Sex: Female
  Weight: 79.4 kg

DRUGS (4)
  1. SYMBICORT [Suspect]
     Indication: ASTHMA
     Dosage: 160/4.5, 2 PUFFS, TWO TIMES A DAY
     Route: 055
     Dates: start: 20130128
  2. CARDIS [Concomitant]
     Indication: HYPERTENSION
     Dates: start: 2009
  3. CEPHALEXIN [Concomitant]
     Indication: ANTIBIOTIC THERAPY
     Route: 048
     Dates: start: 201301
  4. ROBITUSSIN [Concomitant]
     Indication: COUGH
     Dosage: 1 TBSP, AS REQUIRED
     Route: 048
     Dates: start: 201301

REACTIONS (3)
  - Malaise [Not Recovered/Not Resolved]
  - Dyspnoea [Not Recovered/Not Resolved]
  - Drug dose omission [Unknown]
